FAERS Safety Report 17758207 (Version 1)
Quarter: 2020Q2

REPORT INFORMATION
  Report Type: Report from Study
  Country: None (occurrence: SA)
  Receive Date: 20200507
  Receipt Date: 20200507
  Transmission Date: 20200714
  Serious: Yes (Other)
  Sender: FDA-Public Use
  Company Number: SA-ABBVIE-20K-259-3387562-00

PATIENT
  Age: 55 Year
  Sex: Female

DRUGS (5)
  1. VERINE [Concomitant]
     Indication: PRODUCT USED FOR UNKNOWN INDICATION
  2. ARTIFICIAL FRESH EYE DROP [Concomitant]
     Indication: PRODUCT USED FOR UNKNOWN INDICATION
  3. METHYLPREDNISOLONE. [Concomitant]
     Active Substance: METHYLPREDNISOLONE
     Indication: PRODUCT USED FOR UNKNOWN INDICATION
     Route: 050
  4. ACICAL PLUS [Concomitant]
     Indication: PRODUCT USED FOR UNKNOWN INDICATION
  5. MAVYRET [Suspect]
     Active Substance: GLECAPREVIR\PIBRENTASVIR
     Indication: HEPATITIS C
     Route: 048
     Dates: start: 20200312

REACTIONS (2)
  - Facial paralysis [Unknown]
  - IIIrd nerve paralysis [Unknown]

NARRATIVE: CASE EVENT DATE: 20200430
